FAERS Safety Report 8858576 (Version 3)
Quarter: 2012Q4

REPORT INFORMATION
  Report Type: 
  Country: US (occurrence: US)
  Receive Date: 20121024
  Receipt Date: 20121113
  Transmission Date: 20130627
  Serious: Yes (Hospitalization, Disabling, Other)
  Sender: FDA-Public Use
  Company Number: US-009507513-1103USA00953

PATIENT

DRUGS (11)
  1. FOSAMAX [Suspect]
     Indication: OSTEOPENIA
     Dosage: 70 mg, qw
     Route: 048
     Dates: start: 200609, end: 200811
  2. FOSAMAX [Suspect]
     Indication: OSTEOPENIA
     Dosage: 70 mg, qw
     Route: 048
     Dates: start: 200812, end: 201003
  3. ALENDRONATE SODIUM [Suspect]
     Indication: OSTEOPOROSIS
     Dosage: 70 mg, qw
     Route: 048
     Dates: start: 200802
  4. VITAMINS (UNSPECIFIED) [Concomitant]
     Dosage: UNK UNK, qd
     Dates: start: 2000
  5. CALTRATE WITH VITAMIN D [Concomitant]
     Indication: OSTEOPENIA
     Dosage: 600mg-100IU,qd
     Route: 048
     Dates: start: 2000, end: 2011
  6. OMEGA-3 MARINE TRIGLYCERIDES [Concomitant]
     Dosage: 1000 mg, qd
     Dates: start: 2000
  7. PREMARIN [Concomitant]
     Indication: HYSTERECTOMY
     Dosage: 0.3 mg, qd
     Route: 048
     Dates: start: 1990, end: 2010
  8. CALCIUM (UNSPECIFIED) [Concomitant]
     Indication: OSTEOPENIA
  9. VITAMIN D (UNSPECIFIED) [Concomitant]
     Indication: OSTEOPENIA
  10. MICARDIS HCT [Concomitant]
     Indication: HYPERTENSION
     Dosage: 12.5 mg, UNK
     Route: 048
  11. FLONASE [Concomitant]
     Indication: RHINITIS ALLERGIC

REACTIONS (31)
  - Intramedullary rod insertion [Unknown]
  - Low turnover osteopathy [Not Recovered/Not Resolved]
  - Femur fracture [Not Recovered/Not Resolved]
  - Femur fracture [Recovered/Resolved]
  - Urinary tract infection [Unknown]
  - Diverticulum [Unknown]
  - Rotator cuff syndrome [Unknown]
  - Iron deficiency anaemia [Unknown]
  - Intervertebral disc degeneration [Unknown]
  - Personality change [Unknown]
  - Emphysema [Unknown]
  - Weight increased [Unknown]
  - C-reactive protein increased [Unknown]
  - Arthropod bite [Recovered/Resolved]
  - Spinal osteoarthritis [Unknown]
  - Cough [Unknown]
  - Hyperglycaemia [Unknown]
  - Muscular weakness [Unknown]
  - Thrombocytosis [Unknown]
  - Blood cholesterol [Unknown]
  - Sciatica [Unknown]
  - Asthenia [Unknown]
  - Arthropod bite [Unknown]
  - Dermatitis contact [Unknown]
  - Oedema peripheral [Unknown]
  - Arthralgia [Unknown]
  - Arthralgia [Unknown]
  - Myalgia [Unknown]
  - Muscle spasms [Unknown]
  - Pain in extremity [Unknown]
  - Increased tendency to bruise [Unknown]
